FAERS Safety Report 19074752 (Version 2)
Quarter: 2025Q3

REPORT INFORMATION
  Report Type: Spontaneous
  Country: EU (occurrence: EU)
  Receive Date: 20210330
  Receipt Date: 20250822
  Transmission Date: 20251021
  Serious: Yes (Hospitalization, Disabling)
  Sender: BIOGEN
  Company Number: EU-BIOGEN-2021BI00994583

PATIENT
  Age: 51 Year
  Sex: Female

DRUGS (2)
  1. TYSABRI [Suspect]
     Active Substance: NATALIZUMAB
     Indication: Multiple sclerosis
     Route: 050
     Dates: start: 20100601, end: 201902
  2. TYSABRI [Suspect]
     Active Substance: NATALIZUMAB
     Route: 050
     Dates: start: 20100601, end: 2019

REACTIONS (2)
  - Noninfective encephalitis [Recovered/Resolved with Sequelae]
  - Multiple sclerosis relapse [Not Recovered/Not Resolved]

NARRATIVE: CASE EVENT DATE: 20190201
